FAERS Safety Report 7596510 (Version 13)
Quarter: 2013Q1

REPORT INFORMATION
  Report Type: Spontaneous
  Country: US (occurrence: US)
  Receive Date: 20100920
  Receipt Date: 20130213
  Transmission Date: 20140127
  Serious: Yes (Hospitalization, Disabling, Other)
  Sender: FDA-Public Use
  Company Number: US-ASTRAZENECA-2010SE08567

PATIENT
  Age: 49 Year
  Sex: Female
  Weight: 68 kg

DRUGS (11)
  1. SEROQUEL [Suspect]
     Indication: SLEEP DISORDER
     Route: 048
     Dates: start: 2009, end: 2010
  2. SEROQUEL [Suspect]
     Indication: BIPOLAR DISORDER
     Route: 048
     Dates: start: 2009, end: 2010
  3. SEROQUEL [Suspect]
     Indication: DEPRESSION
     Route: 048
     Dates: start: 2009, end: 2010
  4. SEROQUEL [Suspect]
     Indication: SLEEP DISORDER
     Route: 048
     Dates: start: 2009
  5. SEROQUEL [Suspect]
     Indication: BIPOLAR DISORDER
     Route: 048
     Dates: start: 2009
  6. SEROQUEL [Suspect]
     Indication: DEPRESSION
     Route: 048
     Dates: start: 2009
  7. SEROQUEL [Suspect]
     Indication: SLEEP DISORDER
     Route: 048
  8. SEROQUEL [Suspect]
     Indication: BIPOLAR DISORDER
     Route: 048
  9. SEROQUEL [Suspect]
     Indication: DEPRESSION
     Route: 048
  10. EFFEXOR [Suspect]
     Route: 065
  11. ANTI-DEPRESSANT [Concomitant]
     Indication: DEPRESSION
     Dosage: DAILY
     Route: 048

REACTIONS (27)
  - Back injury [Unknown]
  - Bipolar disorder [Unknown]
  - Tongue biting [Unknown]
  - Head injury [Unknown]
  - Fall [Recovered/Resolved]
  - Intervertebral disc protrusion [Not Recovered/Not Resolved]
  - Neck injury [Unknown]
  - Paraesthesia [Not Recovered/Not Resolved]
  - Drug withdrawal syndrome [Unknown]
  - Convulsion [Unknown]
  - Accident [Unknown]
  - Anxiety [Unknown]
  - Spinal column injury [Unknown]
  - Adverse event [Unknown]
  - Headache [Unknown]
  - Stress [Unknown]
  - Feeling abnormal [Unknown]
  - Nervousness [Unknown]
  - Malaise [Unknown]
  - Hyperhidrosis [Unknown]
  - Memory impairment [Unknown]
  - Urinary incontinence [Unknown]
  - Insomnia [Not Recovered/Not Resolved]
  - Fatigue [Unknown]
  - Lethargy [Not Recovered/Not Resolved]
  - Weight increased [Unknown]
  - Drug dose omission [Unknown]
